FAERS Safety Report 13054609 (Version 1)
Quarter: 2016Q4

REPORT INFORMATION
  Report Type: Spontaneous
  Country: US (occurrence: US)
  Receive Date: 20161222
  Receipt Date: 20161222
  Transmission Date: 20170207
  Serious: No
  Sender: FDA-Public Use
  Company Number: US-ASTRAZENECA-2016SF32104

PATIENT
  Age: 26411 Day
  Sex: Male
  Weight: 78.5 kg

DRUGS (4)
  1. TENORMIN [Suspect]
     Active Substance: ATENOLOL
     Indication: HYPERTENSION
     Dosage: 50MG, DAILY, GENERIC
     Route: 048
  2. LOTREL [Concomitant]
     Active Substance: AMLODIPINE BESYLATE\BENAZEPRIL HYDROCHLORIDE
     Indication: HYPERTENSION
     Dosage: 5/20MG , DAILY
     Route: 048
  3. ALBUTEROL INHALER [Concomitant]
     Active Substance: ALBUTEROL
     Indication: PROPHYLAXIS
     Dosage: AS REQUIRED
     Route: 055
  4. TUDORZA PRESSAIR [Suspect]
     Active Substance: ACLIDINIUM BROMIDE
     Indication: CHRONIC OBSTRUCTIVE PULMONARY DISEASE
     Dosage: ONE PUFF TWICE DAILY
     Route: 055

REACTIONS (3)
  - Dyspnoea [Unknown]
  - Drug dose omission [Not Recovered/Not Resolved]
  - Device issue [Unknown]

NARRATIVE: CASE EVENT DATE: 20161212
